FAERS Safety Report 5511154-8 (Version None)
Quarter: 2007Q4

REPORT INFORMATION
  Report Type: 
  Country: None (occurrence: None)
  Receive Date: 20071109
  Receipt Date: 20071101
  Transmission Date: 20080405
  Serious: Yes (Hospitalization, Other)
  Sender: FDA-Public Use
  Company Number: CA-ASTRAZENECA-2007UW25677

PATIENT
  Age: 17 Year
  Sex: Female

DRUGS (7)
  1. SEROQUEL [Suspect]
     Indication: HALLUCINATION, AUDITORY
     Dosage: UNDER 75 MG/DAY
     Route: 048
     Dates: start: 20040101, end: 20060101
  2. ZOLOFT [Concomitant]
  3. PREDNISONE [Concomitant]
  4. LORAZEPAM [Concomitant]
     Indication: INSOMNIA
  5. CLONIDINE [Concomitant]
  6. RITALIN [Concomitant]
  7. CONCERTA [Concomitant]

REACTIONS (4)
  - BLOOD GLUCOSE INCREASED [None]
  - HOSPITALISATION [None]
  - SUICIDAL IDEATION [None]
  - WEIGHT INCREASED [None]
